FAERS Safety Report 11196315 (Version 1)
Quarter: 2015Q2

REPORT INFORMATION
  Report Type: Spontaneous
  Country: IT (occurrence: IT)
  Receive Date: 20150617
  Receipt Date: 20150617
  Transmission Date: 20150821
  Serious: Yes (Other)
  Sender: FDA-Public Use
  Company Number: IT-HOSPIRA-2901894

PATIENT

DRUGS (2)
  1. EPIRUBICIN HYDROCHLORIDE. [Suspect]
     Active Substance: EPIRUBICIN HYDROCHLORIDE
     Indication: SMALL CELL LUNG CANCER
     Dosage: ON DAY 1 EVERY THREE WEEKS
     Route: 042
  2. PACLITAXEL. [Suspect]
     Active Substance: PACLITAXEL
     Indication: SMALL CELL LUNG CANCER
     Dosage: ON DAY 1 EVERY THREE WEEKS
     Route: 042

REACTIONS (1)
  - Neurotoxicity [Unknown]
